FAERS Safety Report 6775261-4 (Version None)
Quarter: 2010Q2

REPORT INFORMATION
  Report Type: 
  Country: None (occurrence: None)
  Receive Date: 20100617
  Receipt Date: 20100608
  Transmission Date: 20101027
  Serious: Yes (Hospitalization)
  Sender: FDA-Public Use
  Company Number: GXKR2010JP06355

PATIENT
  Age: 57 Year
  Sex: Female

DRUGS (2)
  1. CARBOPLATIN [Suspect]
     Indication: FALLOPIAN TUBE CANCER
  2. TAXOL [Concomitant]
     Indication: FALLOPIAN TUBE CANCER

REACTIONS (3)
  - ANURIA [None]
  - DIALYSIS [None]
  - RENAL FAILURE ACUTE [None]
